FAERS Safety Report 7680614-6 (Version None)
Quarter: 2011Q3

REPORT INFORMATION
  Report Type: 
  Country: None (occurrence: None)
  Receive Date: 20110812
  Receipt Date: 20110801
  Transmission Date: 20111222
  Serious: Yes (Other)
  Sender: FDA-Public Use
  Company Number: GB-ELI_LILLY_AND_COMPANY-GB201107007526

PATIENT
  Age: 60 Year
  Sex: Male

DRUGS (1)
  1. ZYPREXA [Suspect]
     Dosage: UNK
     Dates: start: 20090101

REACTIONS (3)
  - FATIGUE [None]
  - THROMBOCYTOPENIA [None]
  - HEPATITIS [None]
